FAERS Safety Report 5427508-4 (Version None)
Quarter: 2007Q3

REPORT INFORMATION
  Report Type: 
  Country: None (occurrence: None)
  Receive Date: 20070824
  Receipt Date: 20070824
  Transmission Date: 20080115
  Serious: Yes (Hospitalization)
  Sender: FDA-Public Use
  Company Number: None

PATIENT
  Sex: Female
  Weight: 106 kg

DRUGS (13)
  1. IRINOTECAN HCL [Suspect]
     Indication: GLIOBLASTOMA MULTIFORME
     Dosage: 125MG/M2 DAY 1,6,22,29 IV
     Route: 042
     Dates: start: 20060420
  2. IRINOTECAN HCL [Suspect]
     Indication: GLIOBLASTOMA MULTIFORME
     Dosage: 125MG/M2 DAY 1,6,22,29 IV
     Route: 042
     Dates: start: 20060427
  3. IRINOTECAN HCL [Suspect]
     Indication: GLIOBLASTOMA MULTIFORME
     Dosage: 125MG/M2 DAY 1,6,22,29 IV
     Route: 042
     Dates: start: 20060511
  4. TEMODAR [Suspect]
     Indication: GLIOBLASTOMA MULTIFORME
     Dosage: 200 MG/M2 DAYS 1-5 PO
     Route: 048
     Dates: start: 20060420, end: 20060424
  5. WELLBUTRIN [Concomitant]
  6. DECADRON [Concomitant]
  7. PROVIGIL [Concomitant]
  8. XANAX [Concomitant]
  9. PROTONIX [Concomitant]
  10. LISINOPRIL [Concomitant]
  11. ZANTAC 150 [Concomitant]
  12. OXYCODONE HCL [Concomitant]
  13. FLEXERIL [Concomitant]

REACTIONS (6)
  - ASTHENIA [None]
  - CONVULSION [None]
  - DISEASE PROGRESSION [None]
  - DYSPHAGIA [None]
  - ILL-DEFINED DISORDER [None]
  - SOMNOLENCE [None]
